FAERS Safety Report 20603821 (Version 3)
Quarter: 2022Q2

REPORT INFORMATION
  Report Type: Spontaneous
  Country: JP (occurrence: JP)
  Receive Date: 20220316
  Receipt Date: 20220603
  Transmission Date: 20220721
  Serious: Yes (Death, Other)
  Sender: FDA-Public Use
  Company Number: JP-JAZZ-2022-JP-004244

PATIENT
  Age: 63 Year
  Sex: Male
  Weight: 49.2 kg

DRUGS (1)
  1. DEFITELIO [Suspect]
     Active Substance: DEFIBROTIDE SODIUM
     Indication: Venoocclusive liver disease
     Dosage: 25 MG/KG
     Route: 042
     Dates: start: 20220120, end: 20220208

REACTIONS (2)
  - Venoocclusive liver disease [Fatal]
  - Blood bilirubin increased [Not Recovered/Not Resolved]

NARRATIVE: CASE EVENT DATE: 20220101
